FAERS Safety Report 24710985 (Version 1)
Quarter: 2024Q4

REPORT INFORMATION
  Report Type: Spontaneous
  Country: CN (occurrence: CN)
  Receive Date: 20241209
  Receipt Date: 20241209
  Transmission Date: 20250115
  Serious: Yes (Other)
  Sender: ACCORD
  Company Number: None

PATIENT
  Age: 54 Year
  Sex: Female
  Weight: 52 kg

DRUGS (3)
  1. TRASTUZUMAB [Suspect]
     Active Substance: TRASTUZUMAB
     Indication: Breast cancer metastatic
     Dosage: 150 MILLIGRAM?600 MILLIGRAM, QD
     Route: 058
     Dates: start: 20241122, end: 20241122
  2. DOCETAXEL [Suspect]
     Active Substance: DOCETAXEL
     Indication: Breast cancer metastatic
     Dosage: 100 MILLIGRAM, QD, V DRIP
     Dates: start: 20241122, end: 20241122
  3. ONDANSETRON [Concomitant]
     Active Substance: ONDANSETRON
     Indication: Gastrointestinal disorder prophylaxis
     Dosage: 8 MILLIGRAM, QD, IV DRIP
     Dates: start: 20241122, end: 20241122

REACTIONS (3)
  - Myelosuppression [Unknown]
  - Decreased appetite [Recovering/Resolving]
  - Incorrect route of product administration [Recovering/Resolving]

NARRATIVE: CASE EVENT DATE: 20241124
